FAERS Safety Report 4723476-9 (Version None)
Quarter: 2005Q3

REPORT INFORMATION
  Report Type: 
  Country: None (occurrence: None)
  Receive Date: 20050725
  Receipt Date: 20050714
  Transmission Date: 20060218
  Serious: Yes (Death)
  Sender: FDA-Public Use
  Company Number: GB-GLAXOSMITHKLINE-B0387835A

PATIENT

DRUGS (1)
  1. SERETIDE [Suspect]
     Dates: start: 20040101

REACTIONS (1)
  - DEATH [None]
